FAERS Safety Report 6067852-3 (Version None)
Quarter: 2009Q1

REPORT INFORMATION
  Report Type: 
  Country: None (occurrence: None)
  Receive Date: 20090202
  Receipt Date: 20090116
  Transmission Date: 20090719
  Serious: No
  Sender: FDA-Public Use
  Company Number: US025331

PATIENT
  Age: 66 Year
  Sex: Female

DRUGS (1)
  1. FENTORA [Suspect]
     Dosage: BUCCAL
     Route: 002

REACTIONS (1)
  - DRUG ADMINISTRATION ERROR [None]
